FAERS Safety Report 9774226 (Version 5)
Quarter: 2014Q1

REPORT INFORMATION
  Report Type: Report from Study
  Country: CA (occurrence: CA)
  Receive Date: 20131220
  Receipt Date: 20140131
  Transmission Date: 20141002
  Serious: Yes (Life-Threatening, Disabling, Other)
  Sender: FDA-Public Use
  Company Number: CA-JNJFOC-20131106907

PATIENT
  Age: 49 Year
  Sex: Male
  Weight: 80 kg

DRUGS (3)
  1. STELARA [Suspect]
     Indication: PSORIASIS
     Route: 058
     Dates: start: 20120918, end: 20130530
  2. STELARA [Suspect]
     Indication: PSORIASIS
     Route: 058
     Dates: start: 20120918, end: 20130415
  3. HUMIRA [Concomitant]
     Indication: PSORIASIS
     Route: 058
     Dates: start: 20120715, end: 20120918

REACTIONS (15)
  - Hepatitis C [Unknown]
  - Ascites [Unknown]
  - Cardiac failure [Unknown]
  - Hepatic failure [Not Recovered/Not Resolved]
  - Pneumonia [Unknown]
  - Bronchitis [Unknown]
  - Respiratory tract infection [Unknown]
  - Kidney infection [Unknown]
  - Muscle atrophy [Unknown]
  - Pyrexia [Recovered/Resolved]
  - Thrombocytopenia [Not Recovered/Not Resolved]
  - Peritonitis bacterial [Unknown]
  - Weight decreased [Unknown]
  - Injection site discolouration [Unknown]
  - Infection [Recovered/Resolved]
